FAERS Safety Report 9119796 (Version 1)
Quarter: 2013Q1

REPORT INFORMATION
  Report Type: Spontaneous
  Country: DK (occurrence: DK)
  Receive Date: 20130207
  Receipt Date: 20130207
  Transmission Date: 20140127
  Serious: Yes (Hospitalization)
  Sender: FDA-Public Use
  Company Number: PHHY2013DK009299

PATIENT
  Sex: Female

DRUGS (2)
  1. LAMOTRIGINE [Suspect]
     Indication: DEPRESSION
     Dosage: 25 MG
     Route: 065
     Dates: start: 20121106, end: 20121120
  2. QUETIAPINE [Suspect]
     Indication: DEPRESSION
     Dosage: 300 MG, QD
     Route: 048

REACTIONS (1)
  - Thrombosis [Unknown]
